FAERS Safety Report 16883506 (Version 3)
Quarter: 2020Q1

REPORT INFORMATION
  Report Type: Spontaneous
  Country: ES (occurrence: ES)
  Receive Date: 20191004
  Receipt Date: 20200117
  Transmission Date: 20200409
  Serious: Yes (Hospitalization)
  Sender: FDA-Public Use
  Company Number: ES-TEVA-2019-ES-1117008

PATIENT
  Age: 84 Year
  Sex: Male

DRUGS (7)
  1. PANTOPRAZOL (7275A) [Concomitant]
     Active Substance: PANTOPRAZOLE
  2. RIVAROXABAN (8281A) [Suspect]
     Active Substance: RIVAROXABAN
     Indication: ATRIAL FIBRILLATION
     Route: 048
     Dates: start: 20190806
  3. RAMIPRIL 5 MG COMPRIMIDO [Concomitant]
  4. NITROGLICERINA (1037A) [Concomitant]
  5. CLOPIDOGREL [Suspect]
     Active Substance: CLOPIDOGREL BISULFATE
     Indication: CORONARY ARTERY OCCLUSION
     Dosage: 75 MG
     Route: 048
     Dates: start: 20190807
  6. ATORVASTATINA (7400A) [Concomitant]
     Active Substance: ATORVASTATIN
  7. BISOPROLOL 2,5 MG COMPRIMIDO [Concomitant]
     Active Substance: BISOPROLOL

REACTIONS (1)
  - Melaena [Unknown]

NARRATIVE: CASE EVENT DATE: 20190910
